FAERS Safety Report 18855644 (Version 3)
Quarter: 2021Q3

REPORT INFORMATION
  Report Type: Spontaneous
  Country: AU (occurrence: AU)
  Receive Date: 20210205
  Receipt Date: 20210712
  Transmission Date: 20211014
  Serious: Yes (Other)
  Sender: FDA-Public Use
  Company Number: AU-ASCEND THERAPEUTICS US, LLC-2106423

PATIENT
  Age: 18 Year
  Sex: Male

DRUGS (10)
  1. PROGESTERONE. [Suspect]
     Active Substance: PROGESTERONE
     Route: 065
  2. PROGESTERONE. [Suspect]
     Active Substance: PROGESTERONE
     Route: 065
  3. CYPROTERONE ACETATE(CYPROTERONE ACETATE) [Suspect]
     Active Substance: CYPROTERONE ACETATE
     Route: 065
  4. ESTROGEL [Suspect]
     Active Substance: ESTRADIOL
     Route: 065
  5. ESTROGEL [Suspect]
     Active Substance: ESTRADIOL
  6. CYPROTERONE ACETATE (CYPROTERONE ACETATE), UNK, UNK [Suspect]
     Active Substance: CYPROTERONE ACETATE
     Route: 065
  7. ESTRADIOL, NOS (ESTRADIOL) [Suspect]
     Active Substance: ESTRADIOL
     Route: 065
  8. ESTROGEL [Suspect]
     Active Substance: ESTRADIOL
     Route: 059
  9. ESTROGEL [Suspect]
     Active Substance: ESTRADIOL
     Indication: HORMONE THERAPY
     Route: 061
  10. ESTRADIOL. [Suspect]
     Active Substance: ESTRADIOL
     Route: 061

REACTIONS (3)
  - Galactorrhoea [Unknown]
  - Off label use [None]
  - Hyperprolactinaemia [Recovered/Resolved]
